FAERS Safety Report 4474378-7 (Version None)
Quarter: 2004Q4

REPORT INFORMATION
  Report Type: 
  Country: None (occurrence: None)
  Receive Date: 20041014
  Receipt Date: 20041006
  Transmission Date: 20050328
  Serious: Yes (Life-Threatening, Hospitalization, Disabling)
  Sender: FDA-Public Use
  Company Number: US-MERCK-0410USA00923

PATIENT
  Age: 82 Year
  Sex: Female

DRUGS (3)
  1. MONOPRIL [Concomitant]
     Route: 065
  2. ISOSORBIDE [Concomitant]
     Route: 065
  3. VIOXX [Suspect]
     Indication: ARTHRITIS
     Route: 048
     Dates: start: 20020101

REACTIONS (3)
  - ASTHENIA [None]
  - DIZZINESS [None]
  - RED BLOOD CELL COUNT DECREASED [None]
